FAERS Safety Report 8601144-0 (Version None)
Quarter: 2012Q3

REPORT INFORMATION
  Report Type: 
  Country: None (occurrence: None)
  Receive Date: 20120817
  Receipt Date: 20120814
  Transmission Date: 20120928
  Serious: Yes (Death, Other)
  Sender: FDA-Public Use
  Company Number: PHHY2012NZ061438

PATIENT
  Sex: Male

DRUGS (8)
  1. ASPIRIN [Concomitant]
     Dosage: 75 MG, MANE
  2. DOCUSATE SODIUM W/SENNA [Concomitant]
     Dosage: 2 DF, NOCTE
     Route: 048
  3. CRANBERRY CAPSULES [Concomitant]
     Dosage: 2 DF, MANE
     Route: 048
  4. CALCIUM CARBONATE [Concomitant]
     Dosage: 1.25 G, QD
     Route: 048
  5. FUROSEMIDE [Concomitant]
     Indication: CARDIAC FAILURE CONGESTIVE
     Dosage: 40 MG, MANE
     Route: 048
  6. CLOZARIL [Suspect]
     Indication: PSYCHOTIC DISORDER
     Dosage: 25 MG, NOCTE
     Route: 048
     Dates: start: 20090327
  7. COLECALCIFEROL [Concomitant]
     Dosage: 1.25 MG,MONTHLY
     Route: 048
  8. ALENDRONATE SODIUM [Concomitant]
     Dosage: 70 MG, ONCE A WEEK
     Route: 048

REACTIONS (6)
  - DEPRESSED LEVEL OF CONSCIOUSNESS [None]
  - ARRHYTHMIA [None]
  - CONSCIOUSNESS FLUCTUATING [None]
  - HYPOPHAGIA [None]
  - PULSE PRESSURE DECREASED [None]
  - MENTAL IMPAIRMENT [None]
